FAERS Safety Report 4346990-7 (Version None)
Quarter: 2004Q1

REPORT INFORMATION
  Report Type: 
  Country: None (occurrence: None)
  Receive Date: 20040325
  Receipt Date: 20040130
  Transmission Date: 20041129
  Serious: No
  Sender: FDA-Public Use
  Company Number: USA040258077

PATIENT
  Age: 61 Year
  Sex: Female

DRUGS (7)
  1. FORTEO [Suspect]
     Indication: OSTEOPOROSIS
     Dosage: 20 UG/DAY
     Dates: start: 20040128
  2. PROZAC [Concomitant]
  3. CLIMARA [Concomitant]
  4. CALCITRIOL [Concomitant]
  5. CALCIUM CITRATE [Concomitant]
  6. PREMARIN H-C VAGINAL CREAM [Concomitant]
  7. SYNTHROID [Concomitant]

REACTIONS (8)
  - ABDOMINAL PAIN LOWER [None]
  - ABNORMAL DREAMS [None]
  - ASTHENIA [None]
  - DEPRESSED MOOD [None]
  - DIZZINESS [None]
  - FATIGUE [None]
  - FEELING ABNORMAL [None]
  - PARAESTHESIA [None]
